FAERS Safety Report 13263011 (Version 1)
Quarter: 2017Q1

REPORT INFORMATION
  Report Type: Spontaneous
  Country: US (occurrence: US)
  Receive Date: 20170221
  Receipt Date: 20170221
  Transmission Date: 20170428
  Serious: Yes (Death)
  Sender: FDA-Public Use
  Company Number: None

PATIENT
  Age: 61 Year
  Sex: Male

DRUGS (1)
  1. IMATINIB 400MG SUN PHARMACEUTICALS [Suspect]
     Active Substance: IMATINIB
     Route: 048
     Dates: start: 20161028, end: 20170213

REACTIONS (1)
  - Death [None]

NARRATIVE: CASE EVENT DATE: 20170213
